FAERS Safety Report 24251333 (Version 3)
Quarter: 2025Q2

REPORT INFORMATION
  Report Type: Spontaneous
  Country: IT (occurrence: IT)
  Receive Date: 20240826
  Receipt Date: 20250516
  Transmission Date: 20250717
  Serious: Yes (Death, Life-Threatening, Hospitalization)
  Sender: BOEHRINGER INGELHEIM
  Company Number: IT-BoehringerIngelheim-2024-BI-047764

PATIENT
  Sex: Female

DRUGS (1)
  1. JARDIANCE [Suspect]
     Active Substance: EMPAGLIFLOZIN
     Indication: Product used for unknown indication

REACTIONS (9)
  - Diabetic ketoacidosis [Fatal]
  - Malaise [Unknown]
  - Confusional state [Unknown]
  - Pollakiuria [Unknown]
  - Dehydration [Unknown]
  - Lethargy [Unknown]
  - Constipation [Unknown]
  - Skin odour abnormal [Unknown]
  - Product prescribing error [Unknown]
